FAERS Safety Report 23600369 (Version 1)
Quarter: 2024Q1

REPORT INFORMATION
  Report Type: Spontaneous
  Country: CA (occurrence: None)
  Receive Date: 20240306
  Receipt Date: 20240306
  Transmission Date: 20240409
  Serious: Yes (Death, Hospitalization, Disabling)
  Sender: FDA-Public Use
  Company Number: CA-ROCHE-3517572

PATIENT
  Age: 44 Year
  Sex: Female

DRUGS (24)
  1. ACTEMRA [Suspect]
     Active Substance: TOCILIZUMAB
     Indication: Rheumatoid arthritis
     Route: 065
  2. ACTEMRA [Suspect]
     Active Substance: TOCILIZUMAB
     Route: 016
  3. ACTEMRA [Suspect]
     Active Substance: TOCILIZUMAB
     Indication: Rheumatoid arthritis
     Route: 042
  4. ACTEMRA [Suspect]
     Active Substance: TOCILIZUMAB
     Route: 042
  5. ACTEMRA [Suspect]
     Active Substance: TOCILIZUMAB
     Route: 042
  6. ACTEMRA [Suspect]
     Active Substance: TOCILIZUMAB
     Route: 042
  7. ACTEMRA [Suspect]
     Active Substance: TOCILIZUMAB
     Route: 042
  8. ACTEMRA [Suspect]
     Active Substance: TOCILIZUMAB
     Route: 042
  9. ACTEMRA [Suspect]
     Active Substance: TOCILIZUMAB
     Route: 042
  10. ACTEMRA [Suspect]
     Active Substance: TOCILIZUMAB
     Route: 042
  11. ACTEMRA [Suspect]
     Active Substance: TOCILIZUMAB
     Route: 042
  12. ACTEMRA [Suspect]
     Active Substance: TOCILIZUMAB
     Route: 042
  13. ACTEMRA [Suspect]
     Active Substance: TOCILIZUMAB
     Route: 042
  14. ACTEMRA [Suspect]
     Active Substance: TOCILIZUMAB
     Route: 042
  15. ACTEMRA [Suspect]
     Active Substance: TOCILIZUMAB
     Dosage: 1.0 DOSAGE FORMS
     Route: 042
  16. ACTEMRA [Suspect]
     Active Substance: TOCILIZUMAB
     Route: 042
  17. ACTEMRA [Suspect]
     Active Substance: TOCILIZUMAB
     Indication: Rheumatoid arthritis
     Route: 058
  18. RITUXIMAB [Suspect]
     Active Substance: RITUXIMAB
     Indication: Rheumatoid arthritis
     Route: 042
  19. RITUXIMAB [Suspect]
     Active Substance: RITUXIMAB
     Indication: Abdominal discomfort
  20. RITUXIMAB [Suspect]
     Active Substance: RITUXIMAB
     Indication: Rheumatoid arthritis
     Route: 065
  21. RITUXIMAB [Suspect]
     Active Substance: RITUXIMAB
     Indication: Abdominal discomfort
     Route: 065
  22. RITUXIMAB [Suspect]
     Active Substance: RITUXIMAB
     Indication: Rheumatoid arthritis
     Route: 058
  23. RITUXIMAB [Suspect]
     Active Substance: RITUXIMAB
     Indication: Abdominal discomfort
  24. MYCOPHENOLATE MOFETIL [Suspect]
     Active Substance: MYCOPHENOLATE MOFETIL
     Indication: Product used for unknown indication
     Route: 065

REACTIONS (21)
  - Crohn^s disease [Fatal]
  - Drug-induced liver injury [Fatal]
  - Ear infection [Fatal]
  - Exostosis [Fatal]
  - Foot deformity [Fatal]
  - Hepatic cirrhosis [Fatal]
  - Hypercholesterolaemia [Fatal]
  - Joint dislocation [Fatal]
  - Laryngitis [Fatal]
  - Lupus-like syndrome [Fatal]
  - Off label use [Fatal]
  - Osteoporosis [Fatal]
  - Pneumonia [Fatal]
  - Prescribed underdose [Fatal]
  - Pulmonary fibrosis [Fatal]
  - Red blood cell sedimentation rate increased [Fatal]
  - Retinitis [Fatal]
  - Tachycardia [Fatal]
  - Therapeutic product effect incomplete [Fatal]
  - Thrombocytopenia [Fatal]
  - Visual impairment [Fatal]
